FAERS Safety Report 10078616 (Version 2)
Quarter: 2014Q2

REPORT INFORMATION
  Report Type: Spontaneous
  Country: JP (occurrence: JP)
  Receive Date: 20140415
  Receipt Date: 20140501
  Transmission Date: 20141212
  Serious: Yes (Life-Threatening, Hospitalization)
  Sender: FDA-Public Use
  Company Number: JP-JNJFOC-20140406477

PATIENT
  Age: 84 Year
  Sex: Female
  Weight: 51 kg

DRUGS (7)
  1. XARELTO [Suspect]
     Indication: CEREBROVASCULAR ACCIDENT PROPHYLAXIS
     Route: 048
     Dates: start: 20130411, end: 20131113
  2. XARELTO [Suspect]
     Indication: ATRIAL FIBRILLATION
     Route: 048
     Dates: start: 20130411, end: 20131113
  3. BLOPRESS [Concomitant]
     Route: 048
     Dates: start: 20130411
  4. AMLODIN [Concomitant]
     Route: 048
     Dates: start: 20130411
  5. ARTIST [Concomitant]
     Route: 048
     Dates: start: 20130613, end: 20131112
  6. ARTIST [Concomitant]
     Route: 048
     Dates: start: 20130411, end: 20130612
  7. NATRIX [Concomitant]
     Route: 048
     Dates: start: 20130411, end: 20131113

REACTIONS (1)
  - Acute respiratory failure [Recovering/Resolving]
